FAERS Safety Report 7121908-2 (Version None)
Quarter: 2010Q4

REPORT INFORMATION
  Report Type: 
  Country: None (occurrence: None)
  Receive Date: 20101124
  Receipt Date: 20101117
  Transmission Date: 20110411
  Serious: Yes (Other)
  Sender: FDA-Public Use
  Company Number: DE-ROCHE-743396

PATIENT
  Sex: Male
  Weight: 98 kg

DRUGS (16)
  1. METHOXY POLYETHYLENE GLYCOL-EPOETIN BETA [Suspect]
     Route: 065
  2. CELLCEPT [Suspect]
     Indication: IMMUNOSUPPRESSION
     Route: 048
  3. PROGRAF [Concomitant]
     Indication: IMMUNOSUPPRESSION
     Route: 048
  4. DECORTIN H [Concomitant]
     Indication: IMMUNOSUPPRESSION
     Route: 048
  5. PANTOPRAZOLE SODIUM [Concomitant]
     Indication: PROPHYLAXIS
     Route: 048
  6. IDEOS [Concomitant]
     Indication: OSTEOPOROSIS PROPHYLAXIS
     Route: 048
  7. CARMEN [Concomitant]
     Indication: HYPERTENSION
     Route: 048
  8. TOREM [Concomitant]
     Indication: HYPERTENSION
     Route: 048
  9. DOXAZOSIN MESYLATE [Concomitant]
     Indication: HYPERTENSION
     Route: 048
  10. METOHEXAL [Concomitant]
     Indication: HYPERTENSION
     Route: 048
  11. RAMIPRIL [Concomitant]
     Indication: HYPERTENSION
     Route: 048
  12. MOXONIDINE [Concomitant]
     Indication: HYPERTENSION
     Route: 048
  13. LONOLOX [Concomitant]
     Indication: HYPERTENSION
     Route: 048
  14. BICA NORM [Concomitant]
     Indication: METABOLIC ACIDOSIS
     Route: 048
  15. AMPHOTERICIN B [Concomitant]
     Route: 048
  16. CIPRO [Concomitant]
     Indication: ANTIBIOTIC THERAPY
     Route: 048

REACTIONS (2)
  - KIDNEY TRANSPLANT REJECTION [None]
  - UROSEPSIS [None]
